FAERS Safety Report 23490512 (Version 1)
Quarter: 2024Q1

REPORT INFORMATION
  Report Type: Spontaneous
  Country: US (occurrence: None)
  Receive Date: 20240206
  Receipt Date: 20240206
  Transmission Date: 20240409
  Serious: No
  Sender: FDA-Public Use
  Company Number: US-ROCHE-3387105

PATIENT
  Age: 8 Year
  Sex: Female
  Weight: 23.608 kg

DRUGS (3)
  1. NUTROPIN AQ [Suspect]
     Active Substance: SOMATROPIN
     Indication: Short stature
     Dosage: ONCE A DAY 6 DAYS A WEEK: LAST DOSE WAS ON 09/JUL/2023
     Route: 058
     Dates: start: 202304
  2. NUTROPIN AQ [Suspect]
     Active Substance: SOMATROPIN
  3. PERIACTIN [Concomitant]
     Active Substance: CYPROHEPTADINE HYDROCHLORIDE
     Indication: Migraine
     Dosage: TAKES 10 ML IN THE MORNING; 15 ML AT NIGHT; THINKS IT IS 5MG/ML; STARTED BEFORE NUTROPIN
     Route: 048

REACTIONS (6)
  - Product administration error [Unknown]
  - Product dose omission issue [Unknown]
  - Product complaint [Unknown]
  - Device defective [Unknown]
  - Off label use [Unknown]
  - No adverse event [Unknown]

NARRATIVE: CASE EVENT DATE: 20230710
